FAERS Safety Report 20163140 (Version 2)
Quarter: 2021Q4

REPORT INFORMATION
  Report Type: Report from Study
  Country: IT (occurrence: None)
  Receive Date: 20211209
  Receipt Date: 20211214
  Transmission Date: 20220304
  Serious: Yes (Hospitalization)
  Sender: FDA-Public Use
  Company Number: IT-ROCHE-2970955

PATIENT
  Age: 46 Year
  Sex: Male
  Weight: 80 kg

DRUGS (7)
  1. RUNIMOTAMAB [Suspect]
     Active Substance: RUNIMOTAMAB
     Indication: Metastatic neoplasm
     Dosage: DOSE CONCENTRATION 0.66 MG/ML?DOSE LAST STUDY DRUG ADMIN PRIOR AE AND SAE 6.6 MG. DOSE CONCENTRATION
     Route: 042
     Dates: start: 20211123
  2. TRASTUZUMAB [Suspect]
     Active Substance: TRASTUZUMAB
     Indication: Metastatic neoplasm
     Dosage: DOSE LAST STUDY DRUG ADMIN PRIOR AE AND SAE 656 MG.?ON 22/NOV/2021, START DATE OF MOST RECENT DOSE O
     Route: 041
     Dates: start: 20211122
  3. DOMPERIDONE [Concomitant]
     Active Substance: DOMPERIDONE
     Indication: Gastrointestinal disorder prophylaxis
     Route: 048
     Dates: end: 20211119
  4. ESOMEPRAZOLE [Concomitant]
     Active Substance: ESOMEPRAZOLE
     Indication: Gastrointestinal disorder prophylaxis
     Route: 048
  5. LEVETIRACETAM [Concomitant]
     Active Substance: LEVETIRACETAM
     Route: 048
  6. LACOSAMIDE [Concomitant]
     Active Substance: LACOSAMIDE
     Route: 048
  7. APIXABAN [Concomitant]
     Active Substance: APIXABAN
     Route: 048

REACTIONS (3)
  - Pericardial effusion [Not Recovered/Not Resolved]
  - Pyrexia [Not Recovered/Not Resolved]
  - Asthenia [Not Recovered/Not Resolved]

NARRATIVE: CASE EVENT DATE: 20211129
